FAERS Safety Report 11691515 (Version 2)
Quarter: 2015Q4

REPORT INFORMATION
  Report Type: Spontaneous
  Country: JP (occurrence: JP)
  Receive Date: 20151102
  Receipt Date: 20151116
  Transmission Date: 20160304
  Serious: Yes (Death, Other)
  Sender: FDA-Public Use
  Company Number: JP-MEDA-2015100084

PATIENT
  Sex: Male
  Weight: 65.5 kg

DRUGS (5)
  1. ZOLPIDEM [Suspect]
     Active Substance: ZOLPIDEM\ZOLPIDEM TARTRATE
     Indication: INSOMNIA
     Route: 048
  2. TRAMADOL. [Concomitant]
     Active Substance: TRAMADOL
  3. CHLORPHENIRAMINE. [Concomitant]
     Active Substance: CHLORPHENIRAMINE
  4. PARACETAMOL [Concomitant]
     Active Substance: ACETAMINOPHEN
  5. ROPIVACAINE [Concomitant]
     Active Substance: ROPIVACAINE

REACTIONS (6)
  - Multiple fractures [Unknown]
  - Abnormal behaviour [Fatal]
  - Drowning [Fatal]
  - Somnambulism [Unknown]
  - Memory impairment [Unknown]
  - Road traffic accident [Unknown]
